FAERS Safety Report 5213723-1 (Version None)
Quarter: 2007Q1

REPORT INFORMATION
  Report Type: 
  Country: None (occurrence: None)
  Receive Date: 20070119
  Receipt Date: 20070108
  Transmission Date: 20070707
  Serious: Yes (Other)
  Sender: FDA-Public Use
  Company Number: DE-PFIZER INC-2007002873

PATIENT
  Age: 42 Year
  Sex: Female

DRUGS (1)
  1. AROMASIN [Suspect]
     Indication: BREAST CANCER
     Route: 048

REACTIONS (8)
  - ACCOMMODATION DISORDER [None]
  - ARTHRALGIA [None]
  - FATIGUE [None]
  - MUSCLE ATROPHY [None]
  - NAUSEA [None]
  - PHOTOPHOBIA [None]
  - TRIGGER FINGER [None]
  - VISUAL DISTURBANCE [None]
